FAERS Safety Report 9793238 (Version 1)
Quarter: 2014Q1

REPORT INFORMATION
  Report Type: Report from Study
  Country: TR (occurrence: TR)
  Receive Date: 20140102
  Receipt Date: 20140102
  Transmission Date: 20141002
  Serious: Yes (Other)
  Sender: FDA-Public Use
  Company Number: TR-US-EMD SERONO, INC.-7260187

PATIENT
  Sex: Male
  Weight: 80 kg

DRUGS (2)
  1. REBIF [Suspect]
     Indication: RELAPSING-REMITTING MULTIPLE SCLEROSIS
     Route: 058
     Dates: start: 201308
  2. BRUFEN /00109201/ [Suspect]
     Indication: ARTHRALGIA
     Route: 048
     Dates: start: 201308

REACTIONS (1)
  - Lower respiratory tract infection [Recovering/Resolving]
